FAERS Safety Report 8034622-6 (Version None)
Quarter: 2012Q1

REPORT INFORMATION
  Report Type: 
  Country: None (occurrence: None)
  Receive Date: 20120110
  Receipt Date: 20120104
  Transmission Date: 20120608
  Serious: Yes (Other)
  Sender: FDA-Public Use
  Company Number: SE-MERCK-1201SWE00003

PATIENT
  Age: 80 Year
  Sex: Female

DRUGS (4)
  1. HYPROMELLOSE [Concomitant]
     Route: 047
  2. TRUSOPT [Suspect]
     Indication: GLAUCOMA
     Route: 047
     Dates: start: 20100101
  3. FUSIDIC ACID [Concomitant]
     Route: 065
     Dates: start: 20111229, end: 20120104
  4. BIMATOPROST [Concomitant]
     Route: 047

REACTIONS (3)
  - BLINDNESS UNILATERAL [None]
  - PRODUCT DEPOSIT [None]
  - VISUAL ACUITY REDUCED [None]
